FAERS Safety Report 23783987 (Version 2)
Quarter: 2025Q2

REPORT INFORMATION
  Report Type: Spontaneous
  Country: US (occurrence: US)
  Receive Date: 20240425
  Receipt Date: 20250611
  Transmission Date: 20250717
  Serious: No
  Sender: SANOFI AVENTIS
  Company Number: US-SA-SAC20240419000632

PATIENT
  Age: 40 Year
  Sex: Male
  Weight: 125 kg

DRUGS (15)
  1. DUPIXENT [Suspect]
     Active Substance: DUPILUMAB
     Indication: Dermatitis atopic
     Dosage: 300 MG, QOW
     Route: 058
     Dates: start: 20240203
  2. DUPIXENT [Suspect]
     Active Substance: DUPILUMAB
     Indication: Illness
  3. DUPIXENT [Suspect]
     Active Substance: DUPILUMAB
     Indication: Dermatitis atopic
     Dosage: 300 MG, QOW
     Route: 058
  4. DUPIXENT [Suspect]
     Active Substance: DUPILUMAB
     Indication: Illness
  5. ALLEGRA ALLERGY [Concomitant]
     Active Substance: FEXOFENADINE HYDROCHLORIDE
  6. VITAMINS NOS [Concomitant]
     Active Substance: VITAMINS
  7. VITAMIN D NOS [Concomitant]
     Active Substance: CHOLECALCIFEROL\ERGOCALCIFEROL
  8. ENTRESTO [Concomitant]
     Active Substance: SACUBITRIL\VALSARTAN
  9. CARVEDILOL [Concomitant]
     Active Substance: CARVEDILOL
  10. SPIRONOLACTONE [Concomitant]
     Active Substance: SPIRONOLACTONE
  11. CORLANOR [Concomitant]
     Active Substance: IVABRADINE HYDROCHLORIDE
  12. FUROSEMIDE [Concomitant]
     Active Substance: FUROSEMIDE
  13. MAGNESIUM [Concomitant]
     Active Substance: MAGNESIUM
  14. VITAMIN C [Concomitant]
     Active Substance: ASCORBIC ACID
  15. KLOR-CON M20 [Concomitant]
     Active Substance: POTASSIUM CHLORIDE

REACTIONS (3)
  - Rebound atopic dermatitis [Unknown]
  - Product dose omission issue [Unknown]
  - Intentional product misuse [Unknown]

NARRATIVE: CASE EVENT DATE: 20240101
